FAERS Safety Report 10248374 (Version 2)
Quarter: 2014Q3

REPORT INFORMATION
  Report Type: Report from Study
  Country: BR (occurrence: BR)
  Receive Date: 20140620
  Receipt Date: 20140908
  Transmission Date: 20150326
  Serious: Yes (Hospitalization)
  Sender: FDA-Public Use
  Company Number: BR-BIOGENIDEC-2014BI058096

PATIENT
  Age: 46 Year
  Sex: Female

DRUGS (6)
  1. DONAREN [Concomitant]
     Active Substance: TRAZODONE HYDROCHLORIDE
     Indication: INSOMNIA
  2. LORAX [Concomitant]
     Active Substance: LORAZEPAM
     Indication: INSOMNIA
  3. ZOLPIDEM TARTRATE. [Concomitant]
     Active Substance: ZOLPIDEM TARTRATE
  4. DIOVAN [Concomitant]
     Active Substance: VALSARTAN
  5. METICORTEN [Concomitant]
     Active Substance: PREDNISONE
     Indication: BALANCE DISORDER
  6. TYSABRI [Suspect]
     Active Substance: NATALIZUMAB
     Indication: MULTIPLE SCLEROSIS
     Route: 042
     Dates: start: 20130227

REACTIONS (7)
  - Emotional disorder [Unknown]
  - Klebsiella bacteraemia [Not Recovered/Not Resolved]
  - Nervousness [Unknown]
  - Trigeminal neuralgia [Recovered/Resolved]
  - Drug dose omission [Unknown]
  - Blood pressure fluctuation [Unknown]
  - Blood pressure increased [Recovered/Resolved]

NARRATIVE: CASE EVENT DATE: 2013
